FAERS Safety Report 6373369-9 (Version None)
Quarter: 2009Q3

REPORT INFORMATION
  Report Type: 
  Country: None (occurrence: None)
  Receive Date: 20090924
  Receipt Date: 20090409
  Transmission Date: 20100115
  Serious: No
  Sender: FDA-Public Use
  Company Number: US-ASTRAZENECA-2009UW09000

PATIENT
  Age: 6 Year
  Sex: Male
  Weight: 16.3 kg

DRUGS (1)
  1. SEROQUEL [Suspect]
     Indication: IMPULSIVE BEHAVIOUR
     Route: 048

REACTIONS (3)
  - DRY EYE [None]
  - EXCESSIVE EYE BLINKING [None]
  - SOMNOLENCE [None]
